FAERS Safety Report 24558876 (Version 1)
Quarter: 2024Q4

REPORT INFORMATION
  Report Type: Spontaneous
  Country: GB (occurrence: None)
  Receive Date: 20241029
  Receipt Date: 20241029
  Transmission Date: 20250115
  Serious: Yes (Other)
  Sender: ACCORD
  Company Number: None

PATIENT
  Age: 57 Year
  Sex: Male
  Weight: 87 kg

DRUGS (2)
  1. MONTELUKAST [Suspect]
     Active Substance: MONTELUKAST
     Indication: Product used for unknown indication
     Dosage: ONE TO BE TAKEN AT NIGHT
     Dates: end: 20241008
  2. BECLOMETASONE, FORMOTEROL, GLYCOPYRRONIUM [Concomitant]
     Dosage: TWO PUFFS TO BE INHALED TWICE A DAY?172MCG/DOSE / 5MCG/DOSE / 9MCG/DOSE INHALER
     Dates: start: 20241008

REACTIONS (5)
  - Anxiety [Unknown]
  - Anger [Unknown]
  - Depression [Unknown]
  - Social avoidant behaviour [Unknown]
  - Abnormal behaviour [Unknown]
